FAERS Safety Report 19548438 (Version 1)
Quarter: 2021Q3

REPORT INFORMATION
  Report Type: Spontaneous
  Country: US (occurrence: US)
  Receive Date: 20210714
  Receipt Date: 20210714
  Transmission Date: 20211014
  Serious: No
  Sender: FDA-Public Use
  Company Number: None

PATIENT
  Age: 40 Year
  Sex: Female

DRUGS (1)
  1. NEUTROGENA BEACH DEFENSE WATER PLUS SUN PROTECTION SUNSCREEN BROAD SPECTRUM SPF70 [Suspect]
     Active Substance: AVOBENZONE\HOMOSALATE\OCTISALATE\OCTOCRYLENE\OXYBENZONE
     Dosage: ?          QUANTITY:3 SPRAY(S);OTHER FREQUENCY:WHILE OUTSIDE;?
     Route: 061

REACTIONS (2)
  - Recalled product [None]
  - Product contamination chemical [None]

NARRATIVE: CASE EVENT DATE: 20210714
